FAERS Safety Report 5307821-1 (Version None)
Quarter: 2007Q2

REPORT INFORMATION
  Report Type: 
  Country: None (occurrence: None)
  Receive Date: 20070418
  Receipt Date: 20070406
  Transmission Date: 20071010
  Serious: Yes (Death, Other)
  Sender: FDA-Public Use
  Company Number: 2007314447

PATIENT
  Age: 6 Month
  Sex: Male

DRUGS (1)
  1. PSEUDOEPHEDRINE HCL [Suspect]

REACTIONS (1)
  - ANOXIC ENCEPHALOPATHY [None]
